FAERS Safety Report 6160103-0 (Version None)
Quarter: 2009Q2

REPORT INFORMATION
  Report Type: 
  Country: None (occurrence: None)
  Receive Date: 20090420
  Receipt Date: 20090416
  Transmission Date: 20091009
  Serious: Yes (Other)
  Sender: FDA-Public Use
  Company Number: US-BRISTOL-MYERS SQUIBB COMPANY-14590822

PATIENT
  Age: 61 Year
  Sex: Female
  Weight: 48 kg

DRUGS (13)
  1. ABILIFY [Suspect]
  2. NEURONTIN [Suspect]
     Indication: MENTAL DISORDER
     Route: 065
     Dates: start: 20000101
  3. NEURONTIN [Suspect]
     Indication: BIPOLAR DISORDER
     Route: 065
     Dates: start: 20000101
  4. NEURONTIN [Suspect]
     Indication: DEPRESSION
     Route: 065
     Dates: start: 20000101
  5. NEURONTIN [Suspect]
     Indication: ANXIETY
     Route: 065
     Dates: start: 20000101
  6. LEVOTHYROXINE SODIUM [Concomitant]
  7. ETODOLAC [Concomitant]
  8. FLEXERIL [Concomitant]
  9. SIMVASTATIN [Concomitant]
  10. DYAZIDE [Concomitant]
  11. PROZAC [Concomitant]
  12. KLONOPIN [Concomitant]
  13. BUSPAR [Concomitant]

REACTIONS (6)
  - ACCIDENT [None]
  - FALL [None]
  - INSOMNIA [None]
  - MENTAL DISORDER [None]
  - NERVOUS SYSTEM DISORDER [None]
  - VISUAL IMPAIRMENT [None]
